FAERS Safety Report 4562906-2 (Version None)
Quarter: 2005Q1

REPORT INFORMATION
  Report Type: 
  Country: None (occurrence: None)
  Receive Date: 20050121
  Receipt Date: 20041216
  Transmission Date: 20050727
  Serious: Yes (Hospitalization)
  Sender: FDA-Public Use
  Company Number: 2004229285GB

PATIENT
  Sex: Male

DRUGS (1)
  1. XALATAN [Suspect]
     Indication: ILL-DEFINED DISORDER
     Dosage: 1 DROP (1 IN 1 D), OPHTHALMIC
     Route: 047

REACTIONS (5)
  - FEELING HOT [None]
  - HEADACHE [None]
  - HERNIA [None]
  - INFLUENZA LIKE ILLNESS [None]
  - MYALGIA [None]
